FAERS Safety Report 18289634 (Version 1)
Quarter: 2020Q3

REPORT INFORMATION
  Report Type: Spontaneous
  Country: US (occurrence: US)
  Receive Date: 20200921
  Receipt Date: 20200921
  Transmission Date: 20201103
  Serious: No
  Sender: FDA-Public Use
  Company Number: US-BRAINTREE LABORATORIES-190510

PATIENT
  Age: 84 Year
  Sex: Male
  Weight: 90.72 kg

DRUGS (1)
  1. SUPREP BOWEL PREP [Suspect]
     Active Substance: MAGNESIUM SULFATE\POTASSIUM SULFATE\SODIUM SULFATE
     Indication: COLONOSCOPY
     Dosage: 2 X 6 OZ. BOTTLE
     Route: 048
     Dates: start: 20190909, end: 20190910

REACTIONS (3)
  - Nervousness [None]
  - Dizziness [None]
  - Haemorrhage urinary tract [None]

NARRATIVE: CASE EVENT DATE: 20190910
